FAERS Safety Report 18963854 (Version 2)
Quarter: 2021Q4

REPORT INFORMATION
  Report Type: Spontaneous
  Country: GB (occurrence: GB)
  Receive Date: 20210303
  Receipt Date: 20211027
  Transmission Date: 20220303
  Serious: Yes (Other)
  Sender: FDA-Public Use
  Company Number: None

PATIENT
  Age: 71 Year
  Sex: Male
  Weight: 74 kg

DRUGS (1)
  1. PIOGLITAZONE [Suspect]
     Active Substance: PIOGLITAZONE
     Indication: Ill-defined disorder
     Dosage: 15MG
     Route: 048
     Dates: start: 20210107

REACTIONS (3)
  - Weight increased [Unknown]
  - Dyspnoea [Unknown]
  - Pain [Unknown]
